FAERS Safety Report 4307866-4 (Version None)
Quarter: 2004Q1

REPORT INFORMATION
  Report Type: 
  Country: None (occurrence: None)
  Receive Date: 20040225
  Receipt Date: 20030410
  Transmission Date: 20041129
  Serious: Yes (Hospitalization)
  Sender: FDA-Public Use
  Company Number: WAES 0304USA01276

PATIENT
  Age: 82 Year
  Sex: Female

DRUGS (6)
  1. ZOCOR [Suspect]
     Dosage: 40 MG/DAILY/PO
     Route: 048
     Dates: end: 20020901
  2. PLAVIX [Concomitant]
  3. PRILOSEC [Concomitant]
  4. ALPRAZOLAM [Concomitant]
  5. POTASSIUM CHLORIDE [Concomitant]
  6. VERAPAMIL [Concomitant]

REACTIONS (1)
  - PANCREATITIS [None]
